FAERS Safety Report 5807200-4 (Version None)
Quarter: 2008Q3

REPORT INFORMATION
  Report Type: 
  Country: None (occurrence: None)
  Receive Date: 20080711
  Receipt Date: 20080707
  Transmission Date: 20090109
  Serious: Yes (Hospitalization)
  Sender: FDA-Public Use
  Company Number: B0525004A

PATIENT
  Age: 38 Year
  Sex: Male

DRUGS (3)
  1. AMOXICILLIN TRIHYDRATE [Suspect]
     Dosage: 1500MG PER DAY
     Route: 048
     Dates: start: 20080517, end: 20080521
  2. FLAGYL [Concomitant]
     Dosage: 500MG PER DAY
     Route: 048
     Dates: start: 20080517, end: 20080521
  3. PARIET [Concomitant]
     Dosage: 20MG PER DAY
     Route: 048
     Dates: start: 20080517, end: 20080521

REACTIONS (4)
  - ABDOMINAL PAIN [None]
  - DIARRHOEA [None]
  - ENTEROCOLITIS HAEMORRHAGIC [None]
  - HAEMATOCHEZIA [None]
